FAERS Safety Report 18923632 (Version 2)
Quarter: 2021Q4

REPORT INFORMATION
  Report Type: Spontaneous
  Country: ES (occurrence: ES)
  Receive Date: 20210222
  Receipt Date: 20211005
  Transmission Date: 20220303
  Serious: Yes (Life-Threatening, Hospitalization)
  Sender: FDA-Public Use
  Company Number: ES-CELLTRION HEALTHCARE HUNGARY KFT-2021ES001556

PATIENT
  Age: 32 Year
  Sex: Female

DRUGS (13)
  1. METHYLPREDNISOLONE SODIUM SUCCINATE [Suspect]
     Active Substance: METHYLPREDNISOLONE SODIUM SUCCINATE
     Indication: Susac^s syndrome
     Dosage: 1 G, DAILY
     Route: 042
     Dates: start: 202001
  2. METHYLPREDNISOLONE SODIUM SUCCINATE [Suspect]
     Active Substance: METHYLPREDNISOLONE SODIUM SUCCINATE
     Indication: COVID-19
     Dosage: UNK (0.4 G/KG/DAY/5DAYS)
     Route: 042
  3. METHYLPREDNISOLONE SODIUM SUCCINATE [Suspect]
     Active Substance: METHYLPREDNISOLONE SODIUM SUCCINATE
     Dosage: 1000 MG, DAILY
     Route: 042
     Dates: start: 20200326
  4. HUMAN IMMUNOGLOBULIN G [Suspect]
     Active Substance: HUMAN IMMUNOGLOBULIN G
     Indication: Susac^s syndrome
     Dosage: UNK, DAILY (0.4 G/KG/DAY/5DAYS)
     Route: 042
     Dates: start: 202001
  5. MYCOPHENOLATE MOFETIL [Suspect]
     Active Substance: MYCOPHENOLATE MOFETIL
     Indication: Susac^s syndrome
     Dosage: 1000 MG, BID
     Dates: start: 202001
  6. RITUXIMAB [Suspect]
     Active Substance: RITUXIMAB
     Indication: Susac^s syndrome
     Dosage: 1000 MG
     Dates: start: 20200111
  7. RITUXIMAB [Suspect]
     Active Substance: RITUXIMAB
     Dosage: 1000 MG
     Dates: start: 20200125
  8. PREDNISONE [Suspect]
     Active Substance: PREDNISONE
     Indication: Susac^s syndrome
     Dosage: 1 MG/KG PER DAY, (NOT EXCEEDING 80 MG PER DAY)
     Route: 048
     Dates: start: 202001
  9. CYCLOPHOSPHAMIDE [Suspect]
     Active Substance: CYCLOPHOSPHAMIDE
     Indication: Susac^s syndrome
     Dosage: 1300 MG, 10 MG/KG (TWO INITIAL DOSES OF 10-15 MG/KG 2 WEEKS APART)
     Dates: start: 20200305
  10. CALCIFEDIOL [Concomitant]
     Active Substance: CALCIFEDIOL
     Indication: Susac^s syndrome
     Dosage: 0,266 MG/MONTH (VIT D 15.960 UI)
  11. CALCIUM CARBONATE\CHOLECALCIFEROL [Concomitant]
     Active Substance: CALCIUM CARBONATE\CHOLECALCIFEROL
     Indication: Susac^s syndrome
     Dosage: 1 PILL PER DAY
  12. OMEPRAZOLE [Concomitant]
     Active Substance: OMEPRAZOLE
     Dosage: 20 MG/DAY
     Dates: start: 20200212
  13. SULFAMETHOXAZOLE AND TRIMETHOPRIM [Concomitant]
     Active Substance: SULFAMETHOXAZOLE\TRIMETHOPRIM
     Indication: Susac^s syndrome
     Dosage: 160/800MG (1 PILL/DAY)

REACTIONS (5)
  - Condition aggravated [Unknown]
  - COVID-19 [Not Recovered/Not Resolved]
  - Pneumonia [Unknown]
  - Off label use [Unknown]
  - Drug ineffective for unapproved indication [Unknown]
